FAERS Safety Report 22159778 (Version 2)
Quarter: 2023Q2

REPORT INFORMATION
  Report Type: Spontaneous
  Country: US (occurrence: US)
  Receive Date: 20230331
  Receipt Date: 20230413
  Transmission Date: 20230721
  Serious: No
  Sender: FDA-Public Use
  Company Number: US-AMGEN-USASP2023053137

PATIENT
  Age: 76 Year
  Sex: Male

DRUGS (1)
  1. KYPROLIS [Suspect]
     Active Substance: CARFILZOMIB
     Indication: Plasma cell myeloma
     Dosage: 29 MILLIGRAM
     Route: 042
     Dates: start: 20220809, end: 20230302

REACTIONS (1)
  - Intercepted product preparation error [Recovered/Resolved]

NARRATIVE: CASE EVENT DATE: 20230302
